FAERS Safety Report 6651046-4 (Version None)
Quarter: 2010Q1

REPORT INFORMATION
  Report Type: 
  Country: None (occurrence: None)
  Receive Date: 20100325
  Receipt Date: 20100312
  Transmission Date: 20100710
  Serious: No
  Sender: FDA-Public Use
  Company Number: US-B.I. PHARMACEUTICALS,INC./RIDGEFIELD-2008-BP-01631BP

PATIENT
  Sex: Female

DRUGS (9)
  1. SPIRIVA [Suspect]
     Indication: CHRONIC OBSTRUCTIVE PULMONARY DISEASE
     Dosage: 18 MCG
     Route: 055
  2. SPIRIVA [Suspect]
     Indication: EMPHYSEMA
     Dosage: 18 MCG
     Route: 055
     Dates: start: 20100111, end: 20100310
  3. DUONEB [Concomitant]
     Indication: CHRONIC OBSTRUCTIVE PULMONARY DISEASE
  4. ALBUTEROL [Concomitant]
     Indication: CHRONIC OBSTRUCTIVE PULMONARY DISEASE
  5. PREDNISONE [Concomitant]
     Indication: CHRONIC OBSTRUCTIVE PULMONARY DISEASE
     Dosage: 5 MG
     Route: 048
  6. ADVAIR DISKUS 100/50 [Concomitant]
     Indication: CHRONIC OBSTRUCTIVE PULMONARY DISEASE
     Route: 055
  7. OMEPRAZOLE [Concomitant]
     Indication: GASTROOESOPHAGEAL REFLUX DISEASE
  8. SIMVASTATIN [Concomitant]
     Indication: BLOOD CHOLESTEROL INCREASED
  9. VITAMINS [Concomitant]
     Indication: MEDICAL DIET

REACTIONS (2)
  - ALOPECIA [None]
  - ARTERIAL DISORDER [None]
